FAERS Safety Report 8942167 (Version 2)
Quarter: 2013Q2

REPORT INFORMATION
  Report Type: Report from Study
  Country: JP (occurrence: JP)
  Receive Date: 20121203
  Receipt Date: 20130407
  Transmission Date: 20140414
  Serious: Yes (Other)
  Sender: FDA-Public Use
  Company Number: JP-009507513-1211JPN012538

PATIENT
  Age: 47 Year
  Sex: Male
  Weight: 64 kg

DRUGS (16)
  1. REBETOL [Suspect]
     Indication: CHRONIC HEPATITIS C
     Dosage: 800 MG, QD
     Route: 048
     Dates: start: 20120906, end: 20121004
  2. REBETOL [Suspect]
     Dosage: 600 MG, QD
     Route: 048
     Dates: start: 20121004, end: 20130222
  3. PEGINTRON [Suspect]
     Indication: CHRONIC HEPATITIS C
     Dosage: 1.5 MICROGRAM PER KILOGRAM, QW
     Route: 058
     Dates: start: 20120906, end: 20130215
  4. TELAVIC [Suspect]
     Indication: CHRONIC HEPATITIS C
     Dosage: 1500 MG, QD
     Route: 048
     Dates: start: 20120906
  5. LENDORMIN [Concomitant]
     Indication: INSOMNIA
     Dosage: 0.25 MG/DAY, PRN AS NEEDED
     Route: 048
     Dates: start: 20120910
  6. FEBURIC [Concomitant]
     Indication: HYPERURICAEMIA
     Dosage: 10 MG, QD
     Route: 048
     Dates: start: 20120910, end: 20120924
  7. FEBURIC [Concomitant]
     Indication: CHRONIC HEPATITIS C
     Dosage: 10 MG, QD
     Route: 048
  8. DIACORT [Concomitant]
     Indication: RASH
     Dosage: 30 G, QD
     Route: 061
     Dates: start: 20120910, end: 20120924
  9. ALLELOCK [Concomitant]
     Indication: RASH
     Dosage: 10 G, QD
     Route: 048
     Dates: start: 20120910, end: 20120920
  10. PREDONINE [Concomitant]
     Indication: RASH
     Dosage: 20 MG, QD
     Route: 048
     Dates: start: 20120920
  11. PREDONINE [Concomitant]
     Indication: CHRONIC HEPATITIS C
     Dosage: 10 MG, QD
     Route: 048
     Dates: end: 20121129
  12. GASTER D [Concomitant]
     Indication: RASH
     Dosage: 40 MG, QD
     Route: 048
     Dates: start: 20120921, end: 20121129
  13. GASTER D [Concomitant]
     Indication: PROPHYLAXIS
  14. GASTER D [Concomitant]
     Indication: CHRONIC HEPATITIS C
  15. [COMPOSITION UNSPECIFIED] [Concomitant]
     Indication: RASH
     Dosage: 50 G/DAY , QD
     Route: 061
     Dates: start: 20120924
  16. MAGMITT [Concomitant]
     Indication: CONSTIPATION
     Dosage: 2 G, QD
     Route: 048
     Dates: start: 20121025

REACTIONS (2)
  - Hyperuricaemia [Recovered/Resolved]
  - Renal impairment [Recovered/Resolved]
